FAERS Safety Report 21303637 (Version 2)
Quarter: 2022Q4

REPORT INFORMATION
  Report Type: Report from Study
  Country: US (occurrence: US)
  Receive Date: 20220907
  Receipt Date: 20221021
  Transmission Date: 20230113
  Serious: No
  Sender: FDA-Public Use
  Company Number: US-GW PHARMA-2022-US-028663

PATIENT
  Sex: Male

DRUGS (11)
  1. EPIDIOLEX [Suspect]
     Active Substance: CANNABIDIOL
     Indication: Epilepsy
     Dosage: 3 MILLILITER, BID
     Dates: start: 20190827
  2. EPIDIOLEX [Suspect]
     Active Substance: CANNABIDIOL
     Indication: Lennox-Gastaut syndrome
     Dosage: 2 MILLILITER, BID
  3. EPIDIOLEX [Suspect]
     Active Substance: CANNABIDIOL
     Indication: Epilepsy
  4. CLOBAZAM [Concomitant]
     Active Substance: CLOBAZAM
     Dosage: UNK
  5. DIAZEPAM [Concomitant]
     Active Substance: DIAZEPAM
     Dosage: UNK
  6. GABAPENTIN [Concomitant]
     Active Substance: GABAPENTIN
     Dosage: 250/5ML
  7. LAMOTRIGINE [Concomitant]
     Active Substance: LAMOTRIGINE
     Dosage: UNK
  8. NAPROXEN [Concomitant]
     Active Substance: NAPROXEN
     Dosage: SUS 125/5ML
  9. NAYZILAM [Concomitant]
     Active Substance: MIDAZOLAM
     Dosage: UNK
  10. OMEPRAZOLE [Concomitant]
     Active Substance: OMEPRAZOLE
     Dosage: UNK
  11. VIMPAT [Concomitant]
     Active Substance: LACOSAMIDE
     Dosage: SOL 10MG/ML

REACTIONS (2)
  - Drug intolerance [Unknown]
  - Fatigue [Unknown]
